FAERS Safety Report 6765731-7 (Version None)
Quarter: 2010Q2

REPORT INFORMATION
  Report Type: 
  Country: None (occurrence: None)
  Receive Date: 20100610
  Receipt Date: 20100610
  Transmission Date: 20101027
  Serious: Yes (Disabling)
  Sender: FDA-Public Use
  Company Number: None

PATIENT
  Sex: Female

DRUGS (1)
  1. REGLAN [Suspect]
     Indication: GASTRIC DISORDER
     Dosage: 1-TABLET 4-TIME DAILY
     Dates: start: 20071001, end: 20090812

REACTIONS (3)
  - DYSKINESIA [None]
  - DYSPHAGIA [None]
  - TARDIVE DYSKINESIA [None]
